FAERS Safety Report 13279754 (Version 2)
Quarter: 2017Q1

REPORT INFORMATION
  Report Type: Spontaneous
  Country: CA (occurrence: CA)
  Receive Date: 20170301
  Receipt Date: 20170317
  Transmission Date: 20170428
  Serious: Yes (Hospitalization, Other)
  Sender: FDA-Public Use
  Company Number: CA-BAXTER-2017BAX003920

PATIENT
  Age: 72 Year
  Sex: Male

DRUGS (4)
  1. EXTRANEAL [Suspect]
     Active Substance: CALCIUM CHLORIDE\ICODEXTRIN\MAGNESIUM CHLORIDE\SODIUM CHLORIDE\SODIUM LACTATE
     Indication: RENAL FAILURE
  2. DIANEAL W/ DEXTROSE 2.5% [Suspect]
     Active Substance: CALCIUM CHLORIDE\DEXTROSE\MAGNESIUM CHLORIDE\SODIUM CHLORIDE\SODIUM LACTATE
     Indication: PERITONEAL DIALYSIS
  3. EXTRANEAL [Suspect]
     Active Substance: CALCIUM CHLORIDE\ICODEXTRIN\MAGNESIUM CHLORIDE\SODIUM CHLORIDE\SODIUM LACTATE
     Indication: PERITONEAL DIALYSIS
     Route: 033
     Dates: start: 2015
  4. DIANEAL W/ DEXTROSE 2.5% [Suspect]
     Active Substance: CALCIUM CHLORIDE\DEXTROSE\MAGNESIUM CHLORIDE\SODIUM CHLORIDE\SODIUM LACTATE
     Indication: RENAL FAILURE
     Route: 033
     Dates: start: 2015

REACTIONS (8)
  - Injury [Unknown]
  - Atrial fibrillation [Unknown]
  - Fall [Unknown]
  - Cerebral haemorrhage [Unknown]
  - Narcolepsy [Unknown]
  - Thoracic vertebral fracture [Unknown]
  - Ligament sprain [Unknown]
  - Dyskinesia [Unknown]
